FAERS Safety Report 7770492-9 (Version None)
Quarter: 2011Q3

REPORT INFORMATION
  Report Type: 
  Country: None (occurrence: None)
  Receive Date: 20110922
  Receipt Date: 20101013
  Transmission Date: 20111222
  Serious: No
  Sender: FDA-Public Use
  Company Number: US-ASTRAZENECA-2010SE48417

PATIENT
  Age: 94 Year
  Sex: Female
  Weight: 61.2 kg

DRUGS (4)
  1. SEROQUEL [Suspect]
     Indication: DEMENTIA
     Dosage: 2 OR 3 TABLETS DAILY
     Route: 048
     Dates: start: 20090101
  2. EFFEXOR [Concomitant]
  3. WATER PILL [Concomitant]
  4. ARICEPT [Concomitant]

REACTIONS (2)
  - DRUG INEFFECTIVE [None]
  - DEMENTIA [None]
